FAERS Safety Report 12021511 (Version 1)
Quarter: 2016Q1

REPORT INFORMATION
  Report Type: Report from Study
  Country: US (occurrence: US)
  Receive Date: 20160206
  Receipt Date: 20160206
  Transmission Date: 20160526
  Serious: No
  Sender: FDA-Public Use
  Company Number: US-ABBVIE-15K-163-1471115-00

PATIENT
  Age: 69 Year
  Sex: Female
  Weight: 70.37 kg

DRUGS (2)
  1. ARIMIDEX [Concomitant]
     Active Substance: ANASTROZOLE
     Indication: BREAST CANCER FEMALE
  2. HUMIRA [Suspect]
     Active Substance: ADALIMUMAB
     Indication: CROHN^S DISEASE
     Route: 058
     Dates: start: 20140501, end: 20150907

REACTIONS (8)
  - Gait disturbance [Unknown]
  - Cold sweat [Unknown]
  - Crohn^s disease [Not Recovered/Not Resolved]
  - Bronchitis [Recovering/Resolving]
  - Dizziness [Unknown]
  - Psoriasis [Recovering/Resolving]
  - Gastrointestinal inflammation [Unknown]
  - Nausea [Unknown]

NARRATIVE: CASE EVENT DATE: 2015
